FAERS Safety Report 8025704-3 (Version None)
Quarter: 2012Q1

REPORT INFORMATION
  Report Type: 
  Country: None (occurrence: None)
  Receive Date: 20120105
  Receipt Date: 20111228
  Transmission Date: 20120608
  Serious: No
  Sender: FDA-Public Use
  Company Number: US-B.I. PHARMACEUTICALS,INC./RIDGEFIELD-2011-BP-28902BP

PATIENT
  Sex: Female

DRUGS (14)
  1. PRADAXA [Suspect]
     Indication: ATRIAL FIBRILLATION
     Dosage: 300 MG
     Route: 048
     Dates: start: 20110701
  2. SOTALOL HCL [Suspect]
     Indication: ATRIAL FIBRILLATION
     Dates: start: 20110101
  3. CARDIZEM [Concomitant]
     Indication: ATRIAL FIBRILLATION
     Route: 048
  4. PROMETHAZINE [Concomitant]
     Indication: NAUSEA
     Route: 048
  5. PREMARIN [Concomitant]
     Route: 048
  6. NUEDEXTA [Suspect]
     Indication: CRYING
     Route: 048
     Dates: start: 20110701
  7. PLAVIX [Concomitant]
     Indication: CARDIAC DISORDER
     Route: 048
  8. IRON [Concomitant]
     Indication: MINERAL SUPPLEMENTATION
     Route: 048
  9. LASIX [Concomitant]
     Indication: OEDEMA PERIPHERAL
     Route: 048
     Dates: start: 20111201
  10. PRAVASTATIN [Concomitant]
     Indication: BLOOD CHOLESTEROL INCREASED
     Route: 048
     Dates: start: 20110101
  11. LEVOXYL [Concomitant]
     Indication: HYPOTHYROIDISM
     Route: 048
  12. AMBIEN [Concomitant]
     Indication: INSOMNIA
     Route: 048
  13. NEURONTIN [Concomitant]
     Indication: NEURALGIA
     Route: 048
  14. XANAX [Concomitant]
     Indication: ANXIETY
     Route: 048

REACTIONS (1)
  - ALOPECIA [None]
